FAERS Safety Report 20033402 (Version 1)
Quarter: 2021Q4

REPORT INFORMATION
  Report Type: Spontaneous
  Country: CH (occurrence: CH)
  Receive Date: 20211104
  Receipt Date: 20211104
  Transmission Date: 20220303
  Serious: Yes (Death, Life-Threatening, Hospitalization, Other)
  Sender: FDA-Public Use
  Company Number: None

PATIENT
  Age: 72 Year
  Sex: Female
  Weight: 79 kg

DRUGS (8)
  1. ULTRAVIST [Suspect]
     Active Substance: IOPROMIDE
     Indication: Computerised tomogram coronary artery
     Dosage: 80 ML, ONCE
     Route: 041
     Dates: start: 20210714, end: 20210714
  2. ASPIRIN [Concomitant]
     Active Substance: ASPIRIN
     Dosage: 100 MG, OM
     Route: 048
  3. CANDESARTAN [Concomitant]
     Active Substance: CANDESARTAN
     Dosage: 4 MG, OM
     Route: 048
  4. ESOMEPRAZOLE [Concomitant]
     Active Substance: ESOMEPRAZOLE
     Dosage: 20 MG, OM
     Route: 048
  5. FLUPENTIXOL DIHYDROCHLORIDE\MELITRACEN HYDROCHLORIDE [Concomitant]
     Active Substance: FLUPENTIXOL DIHYDROCHLORIDE\MELITRACEN HYDROCHLORIDE
     Dosage: 1 DF, QOD
     Route: 048
  6. ACTEMRA [Concomitant]
     Active Substance: TOCILIZUMAB
     Dosage: 1 DF, Q4WK
     Route: 058
  7. NITROGLYCERIN [Concomitant]
     Active Substance: NITROGLYCERIN
     Indication: Computerised tomogram coronary artery
     Dosage: 1 DF, UNK
     Route: 060
     Dates: start: 20210714, end: 20210714
  8. METOPROLOL TARTRATE [Concomitant]
     Active Substance: METOPROLOL TARTRATE
     Indication: Computerised tomogram coronary artery
     Dosage: 30 MG, UNK
     Route: 041
     Dates: start: 20210714, end: 20210714

REACTIONS (4)
  - Syncope [Fatal]
  - Dyspnoea [Fatal]
  - Abdominal pain upper [Fatal]
  - Chest pain [Fatal]

NARRATIVE: CASE EVENT DATE: 20210714
